FAERS Safety Report 8289968 (Version 2)
Quarter: 2013Q2

REPORT INFORMATION
  Report Type: Spontaneous
  Country: US (occurrence: None)
  Receive Date: 20111122
  Receipt Date: 20130107
  Transmission Date: 20140414
  Serious: No
  Sender: FDA-Public Use
  Company Number: PHHY2011US63845

PATIENT
  Age: 43 Year
  Sex: Female

DRUGS (2)
  1. GILENYA (FTY) CAPSULE, 0.5 MG [Suspect]
     Indication: MULTIPLE SCLEROSIS
     Dosage: 0.5 MG, DAILY, ORAL
     Route: 048
     Dates: start: 20111103, end: 20120701
  2. CYMBALTA (DULOXETINE HYDROCHLORIDE) [Concomitant]

REACTIONS (2)
  - FATIGUE [None]
  - Weight increased [None]
